FAERS Safety Report 7545806-5 (Version None)
Quarter: 2011Q2

REPORT INFORMATION
  Report Type: 
  Country: None (occurrence: None)
  Receive Date: 20110614
  Receipt Date: 20110526
  Transmission Date: 20111010
  Serious: Yes (Hospitalization)
  Sender: FDA-Public Use
  Company Number: US-BAYER-201038098NA

PATIENT
  Age: 41 Year
  Sex: Female
  Weight: 58.957 kg

DRUGS (20)
  1. YASMIN [Suspect]
     Dosage: UNK
     Dates: start: 20040101, end: 20090101
  2. DROSPIRENONE AND ETHINYL ESTRADIOL [Suspect]
     Indication: ACNE
  3. PREDNISONE [Concomitant]
     Dosage: 5 UNK, UNK
  4. PREMARIN [Concomitant]
  5. CALCITRIOL [Concomitant]
  6. MYCOPHENOLATE MEFETIL [Concomitant]
  7. VITAMINS NOS [Concomitant]
  8. CELLCEPT [Concomitant]
     Dosage: 750 MG, BID
  9. RANITIDINE [Concomitant]
  10. SIMVASTATIN [Concomitant]
  11. COZAAR [Concomitant]
     Dosage: UNK
     Dates: start: 20030901, end: 20090101
  12. TOPROL-XL [Concomitant]
     Dosage: UNK
     Dates: start: 20080101
  13. YAZ [Suspect]
     Dosage: UNK
  14. ASPIRIN [Concomitant]
  15. NITROGLYCERIN [Concomitant]
  16. TOPROL-XL [Concomitant]
     Dosage: UNK
     Dates: start: 20070401
  17. MAGNESIUM SULFATE [Concomitant]
     Dosage: 200 MG, TID
  18. NEXIUM [Concomitant]
     Dosage: UNK
     Route: 048
     Dates: end: 20090910
  19. PROGRAF [Concomitant]
     Dosage: 2 MG, BID
  20. FUROSEMIDE [Concomitant]
     Dosage: UNK UNK, PRN

REACTIONS (6)
  - HEART INJURY [None]
  - CHEST PAIN [None]
  - CORONARY ARTERY DISEASE [None]
  - PAIN [None]
  - HEART RATE IRREGULAR [None]
  - DYSPNOEA [None]
